FAERS Safety Report 6093868-7 (Version None)
Quarter: 2009Q1

REPORT INFORMATION
  Report Type: 
  Country: None (occurrence: None)
  Receive Date: 20090219
  Receipt Date: 20081211
  Transmission Date: 20090719
  Serious: No
  Sender: FDA-Public Use
  Company Number: WAES 0812USA02582

PATIENT
  Age: 75 Year
  Sex: Male

DRUGS (11)
  1. JANUVIA [Suspect]
     Indication: DIABETES MELLITUS
     Dosage: 25 MG/ DAILY/ PO
     Route: 048
     Dates: start: 20081127, end: 20081128
  2. JANUVIA [Suspect]
     Indication: DIABETES MELLITUS
     Dosage: 25 MG/ DAILY/ PO
     Route: 048
     Dates: start: 20081130, end: 20081201
  3. LASIX [Concomitant]
  4. METANX [Concomitant]
  5. PRILOSEC [Concomitant]
  6. PROSCAR [Concomitant]
  7. ZETIA [Concomitant]
  8. DOXAZOSIN MESYATE [Concomitant]
  9. GEMFIBROZIL [Concomitant]
  10. GLYBURIDE [Concomitant]
  11. SODIUM POLYSTYRENE SULFONATE [Concomitant]

REACTIONS (1)
  - DIARRHOEA [None]
